FAERS Safety Report 5195012-7 (Version None)
Quarter: 2006Q4

REPORT INFORMATION
  Report Type: 
  Country: None (occurrence: None)
  Receive Date: 20061229
  Receipt Date: 20061220
  Transmission Date: 20070319
  Serious: Yes (Other)
  Sender: FDA-Public Use
  Company Number: JP-BRISTOL-MYERS SQUIBB COMPANY-13625561

PATIENT
  Age: 74 Year
  Sex: Male

DRUGS (1)
  1. GATIFLO TABS 100 MG [Suspect]
     Route: 048

REACTIONS (1)
  - HYPOGLYCAEMIA [None]
